FAERS Safety Report 7040871 (Version 2)
Quarter: 2012Q4

REPORT INFORMATION
  Report Type: Report from Study
  Country: US (occurrence: US)
  Receive Date: 20090703
  Receipt Date: 20121004
  Transmission Date: 20130627
  Serious: Yes (Other)
  Sender: FDA-Public Use
  Company Number: US-PFIZER INC-2009227543

PATIENT
  Age: 50 Year
  Sex: Female
  Weight: 61.23 kg

DRUGS (20)
  1. DIFLUCAN [Suspect]
     Indication: INFECTION
  2. SYNTHROID [Concomitant]
     Dosage: 50 mg, 1x/day
  3. ESTRACE [Concomitant]
     Dosage: 1 mg, 1x/day
  4. PROTONIX [Concomitant]
     Indication: REFLUX GASTRITIS
     Dosage: 40 mg, UNK
  5. TOPROL XL [Concomitant]
     Dosage: 25 mg, 1x/day
  6. CRESTOR [Concomitant]
     Indication: BLOOD CHOLESTEROL
     Dosage: 40 mg, 1x/day
  7. ZETIA [Concomitant]
     Indication: BLOOD CHOLESTEROL
     Dosage: 10 mg, 1x/day
  8. ALTACE [Concomitant]
     Dosage: 5 mg, 1x/day
  9. FOSAMAX [Concomitant]
     Dosage: 71.39 mg, 1x/day
  10. PLAQUENIL [Concomitant]
     Indication: ARTHRITIS
     Dosage: 200 mg, 2x/day
  11. FLEXERIL [Concomitant]
     Indication: FIBROMYALGIA
     Dosage: 100 mg, 1x/day
  12. CYMBALTA [Concomitant]
     Indication: FIBROMYALGIA
     Dosage: 60 mg, 1x/day
  13. FLONASE [Concomitant]
     Dosage: 25 g, 1x/day
  14. MIRALAX [Concomitant]
     Dosage: 17 g, 2x/day
  15. LIBRAX [Concomitant]
  16. DOVONEX [Concomitant]
     Indication: PSORIASIS
     Dosage: UNK
  17. DENAVIR [Concomitant]
     Dosage: UNK
  18. TRIAMCINOLONE [Concomitant]
     Indication: PSORIASIS
     Dosage: UNK
  19. ULTRAM [Concomitant]
     Indication: PAIN
     Dosage: 50 mg, UNK
  20. NEURONTIN [Concomitant]
     Indication: PAIN
     Dosage: 100 mg, UNK

REACTIONS (2)
  - Spinal operation [Unknown]
  - Encephalitis [Unknown]
